FAERS Safety Report 8118023-8 (Version None)
Quarter: 2012Q1

REPORT INFORMATION
  Report Type: 
  Country: None (occurrence: None)
  Receive Date: 20120207
  Receipt Date: 20120201
  Transmission Date: 20120608
  Serious: Yes (Death)
  Sender: FDA-Public Use
  Company Number: JP-GENZYME-THYM-1002870

PATIENT
  Sex: Male
  Weight: 63 kg

DRUGS (68)
  1. PLATELETS [Concomitant]
     Indication: ACUTE MYELOID LEUKAEMIA
     Dosage: 430 U, UNK
     Route: 065
     Dates: start: 20090123
  2. GLYCYRRHIZIC ACID-DL-METHIONINE COMBINED DRUG [Concomitant]
     Indication: PRODUCT USED FOR UNKNOWN INDICATION
     Dosage: 100 ML, QD
     Route: 065
     Dates: start: 20090124, end: 20090125
  3. ITRACONAZOLE [Concomitant]
     Dosage: UNK
     Dates: start: 20090223, end: 20090311
  4. ITRACONAZOLE [Concomitant]
     Dosage: 200 MG/DAY, UNK
     Dates: start: 20090302, end: 20090313
  5. DEXCHLORPHENIRAMINE MALEATE [Concomitant]
     Indication: PRODUCT USED FOR UNKNOWN INDICATION
     Dosage: 2 MG/DAY, UNK
     Dates: start: 20090126, end: 20090204
  6. CYCLOPENTOLATE HYDROCHLORIDE [Concomitant]
     Indication: PRODUCT USED FOR UNKNOWN INDICATION
     Dosage: 10 ML, QD
     Dates: start: 20090205, end: 20090205
  7. ACETAMINOPHEN [Concomitant]
     Indication: PRODUCT USED FOR UNKNOWN INDICATION
     Dosage: 400 MG/DAY, UNK
     Dates: start: 20090206, end: 20090208
  8. FLURBIPROFEN [Concomitant]
     Dosage: UNK
     Dates: start: 20090201, end: 20090203
  9. GLYCYRRHIZIC ACID-DL-METHIONINE COMBINED DRUG [Concomitant]
     Dosage: 100 ML, UNK
     Dates: start: 20090126, end: 20090127
  10. FUROSEMIDE [Concomitant]
     Indication: PRODUCT USED FOR UNKNOWN INDICATION
     Dosage: 20 MG, QD
     Route: 065
     Dates: start: 20090128, end: 20090128
  11. METHOTREXATE [Concomitant]
     Dosage: 12 MG/DAY, UNK
     Dates: start: 20090131, end: 20090131
  12. URSODIOL [Concomitant]
     Dosage: UNK
     Dates: start: 20090223, end: 20090228
  13. DEXCHLORPHENIRAMINE MALEATE [Concomitant]
     Dosage: 2 MG/DAY, UNK
     Dates: start: 20090208, end: 20090217
  14. FLURBIPROFEN [Concomitant]
     Indication: PRODUCT USED FOR UNKNOWN INDICATION
     Dosage: 50 MG/DAY, UNK
     Dates: start: 20090201, end: 20090201
  15. VANCOMYCIN HYDROCHLORIDE [Concomitant]
     Indication: PRODUCT USED FOR UNKNOWN INDICATION
     Dosage: 2 G, QD
     Dates: start: 20090202, end: 20090203
  16. FLUDARABINE PHOSPHATE [Concomitant]
     Indication: PRODUCT USED FOR UNKNOWN INDICATION
     Dosage: 50 MG, QD
     Route: 065
     Dates: start: 20090123, end: 20090126
  17. HYDROXYZINE HCL [Concomitant]
     Indication: PRODUCT USED FOR UNKNOWN INDICATION
     Dosage: 25 MG, QD
     Route: 065
     Dates: start: 20090128, end: 20090128
  18. HYDROCORTISONE SODIUM SUCCINATE [Concomitant]
     Indication: PRODUCT USED FOR UNKNOWN INDICATION
     Dosage: 100 MG/DAY, UNK
     Route: 065
     Dates: start: 20090128, end: 20090128
  19. METHOTREXATE [Concomitant]
     Indication: PRODUCT USED FOR UNKNOWN INDICATION
     Dosage: 17 MG/DAY, UNK
     Route: 065
     Dates: start: 20090129, end: 20090129
  20. METHOTREXATE [Concomitant]
     Dosage: 12 MG/DAY, UNK
     Dates: start: 20090203, end: 20090203
  21. MAGNESIUM OXIDE [Concomitant]
     Indication: PRODUCT USED FOR UNKNOWN INDICATION
     Dosage: 1000 MG/DAY, UNK
     Dates: start: 20090123, end: 20090127
  22. CIPROFLOXACIN HYDROCHLORIDE [Concomitant]
     Indication: PRODUCT USED FOR UNKNOWN INDICATION
     Dosage: 600 MG/DAY, UNK
     Dates: start: 20090123, end: 20090203
  23. URSODIOL [Concomitant]
     Dosage: 600 MG/DAY, UNK
     Dates: start: 20090302, end: 20090311
  24. CHLORPROMAZINE HYDROCHLORIDE TAB [Concomitant]
     Indication: PRODUCT USED FOR UNKNOWN INDICATION
     Dosage: 12.5 MG/DAY, UNK
     Dates: start: 20090130, end: 20090203
  25. CHLORPHENIRAMINE MALEATE [Concomitant]
     Indication: PRODUCT USED FOR UNKNOWN INDICATION
     Dosage: 5 MG/DAY, UNK
     Dates: start: 20090212, end: 20090221
  26. RED BLOOD CELLS [Concomitant]
     Indication: ACUTE MYELOID LEUKAEMIA
     Dosage: 36 U, UNK
     Route: 065
     Dates: start: 20090124
  27. CYCLOSPORINE [Concomitant]
     Dosage: UNK
     Dates: start: 20090212, end: 20090213
  28. FILGRASTIM [Concomitant]
     Dosage: 150 MCG/DAY, UNK
     Dates: start: 20090129, end: 20090221
  29. FILGRASTIM [Concomitant]
     Dosage: 75 MCG/DAY, UNK
     Dates: start: 20090129, end: 20090221
  30. METOCLOPRAMIDE [Concomitant]
     Indication: PRODUCT USED FOR UNKNOWN INDICATION
     Dosage: 10 MG/DAY, UNK
     Dates: start: 20090129, end: 20090129
  31. ITRACONAZOLE [Concomitant]
     Indication: PRODUCT USED FOR UNKNOWN INDICATION
     Dosage: 200 MG/DAY, UNK
     Dates: start: 20090123, end: 20090203
  32. URSODIOL [Concomitant]
     Dosage: 600 MG/DAY, UNK
     Dates: start: 20090222, end: 20090222
  33. AMINO ACID PREPARATIONS FOR HEPATIC INSUFFICIENCY [Concomitant]
     Indication: PRODUCT USED FOR UNKNOWN INDICATION
     Dosage: UNK
     Dates: start: 20090207, end: 20090221
  34. METHYLPREDNISOLONE SODIUM SUCCINATE [Concomitant]
     Dosage: UNK
     Dates: start: 20090128, end: 20090130
  35. GLYCYRRHIZIC ACID-DL-METHIONINE COMBINED DRUG [Concomitant]
     Dosage: UNK
     Dates: start: 20090219, end: 20090221
  36. LANSOPRAZOLE [Concomitant]
     Indication: PRODUCT USED FOR UNKNOWN INDICATION
     Dosage: 15 MG/DAY, UNK
     Dates: start: 20090123, end: 20090203
  37. ITRACONAZOLE [Concomitant]
     Dosage: 200 MG/DAY, UNK
     Dates: start: 20090222, end: 20090222
  38. ITRACONAZOLE [Concomitant]
     Dosage: 200 MG/DAY, UNK
     Dates: start: 20090204, end: 20090221
  39. URSODIOL [Concomitant]
     Indication: PRODUCT USED FOR UNKNOWN INDICATION
     Dosage: 600 MG/DAY, UNK
     Dates: start: 20090123, end: 20090217
  40. CLONAZEPAM [Concomitant]
     Indication: PRODUCT USED FOR UNKNOWN INDICATION
     Dosage: UNK
     Dates: start: 20090126, end: 20090206
  41. FAMOTIDINE [Concomitant]
     Indication: PRODUCT USED FOR UNKNOWN INDICATION
     Dosage: 20 MG/DAY, UNK
     Dates: start: 20090203, end: 20090212
  42. CARPERITIDE [Concomitant]
     Dosage: UNK
     Dates: start: 20090214, end: 20090221
  43. MELPHALAN HYDROCHLORIDE [Concomitant]
     Indication: PRODUCT USED FOR UNKNOWN INDICATION
     Dosage: 120 MG, QD
     Route: 065
     Dates: start: 20090125, end: 20090126
  44. SODIUM BICARBONATE [Concomitant]
     Indication: PRODUCT USED FOR UNKNOWN INDICATION
     Dosage: 250 ML, QD
     Route: 065
     Dates: start: 20090125, end: 20090126
  45. FILGRASTIM [Concomitant]
     Indication: PRODUCT USED FOR UNKNOWN INDICATION
     Dosage: 300 MCG/DAY, UNK
     Route: 065
     Dates: start: 20090129, end: 20090221
  46. ACYCLOVIR [Concomitant]
     Indication: PRODUCT USED FOR UNKNOWN INDICATION
     Dosage: 1000 MG, QD
     Dates: start: 20090123, end: 20090203
  47. ACYCLOVIR [Concomitant]
     Dosage: UNK
     Dates: start: 20090203, end: 20090211
  48. POTASSIUM CANRENOATE [Concomitant]
     Indication: PRODUCT USED FOR UNKNOWN INDICATION
     Dosage: 600 MG/DAY, UNK
     Dates: start: 20090207, end: 20090216
  49. ANTITHROMBIN III [Concomitant]
     Indication: PRODUCT USED FOR UNKNOWN INDICATION
     Dosage: 1500 IU, QD
     Dates: start: 20090210, end: 20090212
  50. CHLORPHENIRAMINE MALEATE [Concomitant]
  51. LANSOPRAZOLE [Concomitant]
     Dosage: 30 MG/DAY, UNK
     Dates: start: 20090213, end: 20090213
  52. THYMOGLOBULIN [Suspect]
     Indication: BONE MARROW CONDITIONING REGIMEN
     Dosage: 2.5 MG/KG, QD
     Route: 042
     Dates: start: 20090123, end: 20090126
  53. METHYLPREDNISOLONE SODIUM SUCCINATE [Concomitant]
     Indication: PRODUCT USED FOR UNKNOWN INDICATION
     Dosage: UNK
     Route: 065
     Dates: start: 20090123, end: 20090127
  54. DEXCHLORPHENIRAMINE MALEATE [Concomitant]
     Dosage: 2 MG/DAY, UNK
     Dates: start: 20090209, end: 20090209
  55. FRADIOMYCIN SULFATE-BETAMETHASONE SODIUM PHOSPHATE [Concomitant]
     Indication: PRODUCT USED FOR UNKNOWN INDICATION
     Dosage: 5 ML, QD
     Dates: start: 20090131, end: 20090131
  56. TROPICAMIDE_PHENYLEPHRINE HYDROCHLORIDE [Concomitant]
     Indication: PRODUCT USED FOR UNKNOWN INDICATION
     Dosage: 5 ML, QD
     Dates: start: 20090131, end: 20090131
  57. CEFEPIME [Concomitant]
     Indication: PRODUCT USED FOR UNKNOWN INDICATION
     Dosage: UNK
     Dates: start: 20090201, end: 20090204
  58. FENTANYL CITRATE [Concomitant]
     Dosage: 0.2 MG/DAY, UNK
     Dates: start: 20090203, end: 20090203
  59. FENTANYL CITRATE [Concomitant]
     Dosage: 0.1 MG/DAY, UNK
     Dates: start: 20090222, end: 20090222
  60. DOPAMINE HCL [Concomitant]
     Indication: PRODUCT USED FOR UNKNOWN INDICATION
     Dosage: UNK
     Dates: start: 20090209, end: 20090221
  61. CARPERITIDE [Concomitant]
     Indication: PRODUCT USED FOR UNKNOWN INDICATION
     Dosage: UNK
     Dates: start: 20090212, end: 20090216
  62. LANSOPRAZOLE [Concomitant]
     Dosage: 30 MG/DAY, UNK
     Dates: start: 20090214, end: 20090221
  63. GRANISETRON HYDROCHLORIDE [Concomitant]
     Indication: PRODUCT USED FOR UNKNOWN INDICATION
     Dosage: UNK
     Route: 065
     Dates: start: 20090123, end: 20090126
  64. CYCLOSPORINE [Concomitant]
     Indication: PRODUCT USED FOR UNKNOWN INDICATION
     Dosage: UNK
     Route: 065
     Dates: start: 20090127, end: 20090210
  65. FUROSEMIDE [Concomitant]
     Dosage: 120 MG, QD
     Dates: start: 20090221, end: 20090221
  66. LOXOPROFEN SODIUM [Concomitant]
     Indication: PRODUCT USED FOR UNKNOWN INDICATION
     Dosage: 60 MG/DAY, UNK
     Dates: start: 20090123, end: 20090201
  67. VANCOMYCIN HYDROCHLORIDE [Concomitant]
     Dosage: UNK
     Dates: start: 20090204, end: 20090221
  68. FENTANYL CITRATE [Concomitant]
     Indication: PRODUCT USED FOR UNKNOWN INDICATION
     Dosage: UNK
     Dates: start: 20090202, end: 20090221

REACTIONS (1)
  - VENOOCCLUSIVE LIVER DISEASE [None]
